FAERS Safety Report 20961257 (Version 1)
Quarter: 2022Q2

REPORT INFORMATION
  Report Type: Spontaneous
  Country: US (occurrence: US)
  Receive Date: 20220615
  Receipt Date: 20220615
  Transmission Date: 20220721
  Serious: Yes (Death, Hospitalization, Other)
  Sender: FDA-Public Use
  Company Number: US-AMGEN-USASP2022099157

PATIENT

DRUGS (3)
  1. FILGRASTIM [Suspect]
     Active Substance: FILGRASTIM
     Indication: Prophylaxis
     Dosage: UNK
     Route: 065
  2. METHICILLIN [Concomitant]
     Active Substance: METHICILLIN
  3. VANCOMYCIN [Concomitant]
     Active Substance: VANCOMYCIN

REACTIONS (15)
  - Death [Fatal]
  - Clostridium difficile colitis [Unknown]
  - Febrile neutropenia [Unknown]
  - Achromobacter infection [Unknown]
  - Enterobacter infection [Unknown]
  - Escherichia infection [Unknown]
  - Klebsiella infection [Unknown]
  - Leptotrichia infection [Unknown]
  - Proteus infection [Unknown]
  - Pseudomonas infection [Unknown]
  - Stenotrophomonas infection [Unknown]
  - Granulicatella infection [Unknown]
  - Alpha haemolytic streptococcal infection [Unknown]
  - Staphylococcal infection [Unknown]
  - Enterococcal infection [Unknown]
